FAERS Safety Report 10700165 (Version 1)
Quarter: 2015Q1

REPORT INFORMATION
  Report Type: Spontaneous
  Country: US (occurrence: US)
  Receive Date: 20150109
  Receipt Date: 20150109
  Transmission Date: 20150721
  Serious: No
  Sender: FDA-Public Use
  Company Number: US-PFIZER INC-2015005812

PATIENT
  Age: 36 Year
  Sex: Male
  Weight: 63 kg

DRUGS (4)
  1. VIAGRA [Suspect]
     Active Substance: SILDENAFIL CITRATE
     Dosage: 50 MG, (HALF OF 100MG)
     Dates: start: 20141230
  2. VIAGRA [Suspect]
     Active Substance: SILDENAFIL CITRATE
     Dosage: 25 MG, (ONE QUARTER CUT FROM 100MG)
     Route: 048
  3. VIAGRA [Suspect]
     Active Substance: SILDENAFIL CITRATE
     Dosage: 100 MG, SINGLE
     Dates: start: 20141231, end: 20141231
  4. NEXIUM 24HR [Concomitant]
     Active Substance: ESOMEPRAZOLE MAGNESIUM
     Indication: ABDOMINAL DISCOMFORT
     Dosage: 1 DF, DAILY
     Dates: start: 201407

REACTIONS (3)
  - Drug ineffective [Unknown]
  - Migraine [Recovered/Resolved]
  - Headache [Recovered/Resolved]

NARRATIVE: CASE EVENT DATE: 20141230
